FAERS Safety Report 9306398 (Version 1)
Quarter: 2013Q2

REPORT INFORMATION
  Report Type: Spontaneous
  Country: IT (occurrence: IT)
  Receive Date: 20130523
  Receipt Date: 20130523
  Transmission Date: 20140414
  Serious: Yes (Other)
  Sender: FDA-Public Use
  Company Number: IT-EISAI INC-E3810-06455-SPO-IT

PATIENT
  Age: 65 Year
  Sex: Female

DRUGS (5)
  1. PARIET (RABEPRAZOLE) [Suspect]
     Indication: ABDOMINAL PAIN UPPER
     Route: 048
     Dates: start: 20130318, end: 20130323
  2. PARIET (RABEPRAZOLE) [Suspect]
     Route: 048
     Dates: start: 20130324, end: 20130329
  3. FLUOXETINA [Concomitant]
     Route: 048
  4. ZITROMAX [Concomitant]
     Route: 048
  5. KETOPROFEN [Concomitant]
     Dosage: 100MG/2ML
     Route: 030

REACTIONS (8)
  - Breast pain [Recovered/Resolved]
  - Vertigo [Recovered/Resolved]
  - Visual impairment [Recovered/Resolved]
  - Asthenia [Recovered/Resolved]
  - Influenza like illness [Unknown]
  - Depression [Unknown]
  - Arthralgia [Recovered/Resolved]
  - Headache [Recovered/Resolved]
